FAERS Safety Report 5289543-9 (Version None)
Quarter: 2007Q2

REPORT INFORMATION
  Report Type: 
  Country: None (occurrence: None)
  Receive Date: 20070406
  Receipt Date: 20070322
  Transmission Date: 20071010
  Serious: Yes (Other)
  Sender: FDA-Public Use
  Company Number: US-JNJFOC-20070305474

PATIENT
  Sex: Male

DRUGS (11)
  1. INFLIXIMAB [Suspect]
     Indication: RHEUMATOID ARTHRITIS
     Route: 042
  2. METOPROLOL SUCCINATE [Concomitant]
  3. TRIAMTERENE [Concomitant]
  4. DYNACIRC [Concomitant]
  5. HYDROXYCHLOROQUINE SULFATE [Concomitant]
  6. FOLIC ACID [Concomitant]
  7. METHOTREXATE [Concomitant]
  8. ACTONEL [Concomitant]
  9. MULTI-VITAMIN [Concomitant]
  10. CALCIUM +D [Concomitant]
  11. ORENCIA [Concomitant]

REACTIONS (1)
  - SKIN CANCER [None]
